FAERS Safety Report 6242239-9 (Version None)
Quarter: 2009Q2

REPORT INFORMATION
  Report Type: 
  Country: None (occurrence: None)
  Receive Date: 20090624
  Receipt Date: 20090617
  Transmission Date: 20091009
  Serious: Yes (Hospitalization)
  Sender: FDA-Public Use
  Company Number: US-ELI_LILLY_AND_COMPANY-US200906004277

PATIENT
  Sex: Female

DRUGS (3)
  1. HUMALOG [Suspect]
     Indication: DIABETES MELLITUS
     Dosage: UNK, UNK
     Dates: start: 20010101
  2. HUMALOG [Suspect]
     Dosage: UNK, UNK
     Dates: start: 20010101
  3. HUMALOG [Suspect]
     Indication: TYPE 1 DIABETES MELLITUS

REACTIONS (5)
  - FALL [None]
  - FRUSTRATION [None]
  - HYPERMETROPIA [None]
  - LIMB CRUSHING INJURY [None]
  - VISION BLURRED [None]
